FAERS Safety Report 18352068 (Version 4)
Quarter: 2023Q2

REPORT INFORMATION
  Report Type: Spontaneous
  Country: US (occurrence: US)
  Receive Date: 20201006
  Receipt Date: 20230410
  Transmission Date: 20230722
  Serious: No
  Sender: FDA-Public Use
  Company Number: US-SA-2020SA274340

PATIENT
  Age: 25 Year
  Sex: Male

DRUGS (4)
  1. DUPIXENT [Suspect]
     Active Substance: DUPILUMAB
     Indication: Illness
     Dosage: 300 MG, QOW
     Route: 058
     Dates: start: 20200815
  2. DUPIXENT [Suspect]
     Active Substance: DUPILUMAB
     Indication: Psoriasis
     Dosage: 300 MG, QOW
     Route: 058
     Dates: start: 202008
  3. GRAMICIDIN [Concomitant]
     Active Substance: GRAMICIDIN
     Dosage: UNK
  4. NEOMYCIN [Concomitant]
     Active Substance: NEOMYCIN
     Dosage: UNK

REACTIONS (6)
  - Injection site pain [Unknown]
  - Rash papular [Unknown]
  - Erythema [Unknown]
  - Rash [Unknown]
  - Therapeutic product ineffective for unapproved indication [Unknown]
  - Product use in unapproved indication [Unknown]

NARRATIVE: CASE EVENT DATE: 20201001
